FAERS Safety Report 9839122 (Version 1)
Quarter: 2014Q1

REPORT INFORMATION
  Report Type: Spontaneous
  Country: HR (occurrence: None)
  Receive Date: 20140116
  Receipt Date: 20140116
  Transmission Date: 20141002
  Serious: Yes (Other)
  Sender: FDA-Public Use
  Company Number: NL01PV14.35002

PATIENT
  Age: 62 Year
  Sex: Male
  Weight: 88 kg

DRUGS (3)
  1. FLOSIN (TAMULOSIN) CAPSULE [Suspect]
     Indication: BENIGN PROSTATIC HYPERPLASIA
     Dosage: 1 DF
     Route: 048
     Dates: start: 20131016, end: 20131112
  2. RISPERIDONE [Concomitant]
  3. BYOL (BISOPROLOL) TABLET [Concomitant]

REACTIONS (2)
  - Dysuria [None]
  - Urinary retention [None]
